FAERS Safety Report 12204562 (Version 1)
Quarter: 2016Q1

REPORT INFORMATION
  Report Type: Spontaneous
  Country: BR (occurrence: BR)
  Receive Date: 20160323
  Receipt Date: 20160323
  Transmission Date: 20160526
  Serious: Yes (Other)
  Sender: FDA-Public Use
  Company Number: BR-PFIZER INC-2016168850

PATIENT
  Age: 72 Year
  Sex: Female
  Weight: 60 kg

DRUGS (2)
  1. CELEBRA [Suspect]
     Active Substance: CELECOXIB
     Indication: LIMB INJURY
     Dosage: 200 MG (1 ^TABLET^), 2X/DAY (EVERY 12 HOURS) FOR 15 DAYS
     Route: 048
  2. CELEBRA [Suspect]
     Active Substance: CELECOXIB
     Indication: PERIPHERAL SWELLING

REACTIONS (5)
  - Abasia [Unknown]
  - Limb discomfort [Unknown]
  - Ligament sprain [Unknown]
  - Drug ineffective for unapproved indication [Not Recovered/Not Resolved]
  - Product use issue [Unknown]
